FAERS Safety Report 21746426 (Version 1)
Quarter: 2022Q4

REPORT INFORMATION
  Report Type: Spontaneous
  Country: US (occurrence: None)
  Receive Date: 20221216
  Receipt Date: 20221216
  Transmission Date: 20230113
  Serious: Yes (Hospitalization)
  Sender: FDA-Public Use
  Company Number: None

PATIENT
  Sex: Female

DRUGS (13)
  1. ADBRY [Suspect]
     Active Substance: TRALOKINUMAB-LDRM
     Indication: Dermatitis atopic
     Route: 058
     Dates: start: 20220614
  2. AMLODIPINE TAB [Concomitant]
  3. BUSPIRONE TAB [Concomitant]
  4. CITALOPRAM TAB [Concomitant]
  5. CLOBETASOL E CRE [Concomitant]
  6. GABAPENTIN [Concomitant]
     Active Substance: GABAPENTIN
  7. HYDROCORT CRE [Concomitant]
  8. HYDROXYZ HCL TAB [Concomitant]
  9. LACTULOSE SOL [Concomitant]
  10. OMEPRAZOLE SODIUM [Concomitant]
     Active Substance: OMEPRAZOLE SODIUM
  11. QUETIAPINE TAB [Concomitant]
  12. SIMVASTATIN [Concomitant]
     Active Substance: SIMVASTATIN
  13. TRIAMCINOLON OIN [Concomitant]

REACTIONS (3)
  - Influenza [None]
  - Pneumonia [None]
  - Therapy interrupted [None]
